FAERS Safety Report 21304888 (Version 1)
Quarter: 2022Q3

REPORT INFORMATION
  Report Type: Spontaneous
  Country: US (occurrence: US)
  Receive Date: 20220907
  Receipt Date: 20220907
  Transmission Date: 20221026
  Serious: No
  Sender: FDA-Public Use
  Company Number: US-3M-2021-US-018313

PATIENT
  Age: 77 Year
  Sex: Male
  Weight: 99.79 kg

DRUGS (2)
  1. PERIDEX [Suspect]
     Active Substance: CHLORHEXIDINE GLUCONATE
     Indication: Product used for unknown indication
     Dosage: TWICE DAILY
  2. UNSPECIFIED INGREDIENT [Suspect]
     Active Substance: UNSPECIFIED INGREDIENT
     Dosage: APPLIED TO GROIN AREA
     Route: 061

REACTIONS (1)
  - Lip swelling [Not Recovered/Not Resolved]
